FAERS Safety Report 5648362-1 (Version None)
Quarter: 2008Q1

REPORT INFORMATION
  Report Type: 
  Country: None (occurrence: None)
  Receive Date: 20080229
  Receipt Date: 20080218
  Transmission Date: 20080703
  Serious: Yes (Hospitalization, Other)
  Sender: FDA-Public Use
  Company Number: 100#08#2008-00891

PATIENT
  Age: 82 Year
  Sex: Female

DRUGS (6)
  1. ALENDRONIC ACID [Suspect]
     Indication: OSTEOPOROSIS
     Dosage: 70 MG WEEKLY ORAL
     Route: 048
  2. GLUCOSAMINE HYDROCHLORIDE (GLUCOSAMINE HYDROCHLORIDE) [Concomitant]
  3. CHONDROITIN SULFATE (CHONDROITIN SULFATE) [Concomitant]
  4. CALCIUM CARBONATE (CALCIUM CARBONATE) [Concomitant]
  5. VITAMIN D [Concomitant]
  6. CALCIUM (CALCIUM) [Concomitant]

REACTIONS (9)
  - BLOOD PARATHYROID HORMONE INCREASED [None]
  - BONE LESION [None]
  - BONE SCAN ABNORMAL [None]
  - CREATININE RENAL CLEARANCE DECREASED [None]
  - FALL [None]
  - FEMUR FRACTURE [None]
  - HYDROXYPROLINE INCREASED [None]
  - LOW TURNOVER OSTEOPATHY [None]
  - PAIN IN EXTREMITY [None]
